FAERS Safety Report 17110219 (Version 1)
Quarter: 2019Q4

REPORT INFORMATION
  Report Type: Spontaneous
  Country: FR (occurrence: FR)
  Receive Date: 20191204
  Receipt Date: 20191204
  Transmission Date: 20200122
  Serious: Yes (Hospitalization, Disabling)
  Sender: FDA-Public Use
  Company Number: FR-MYLANLABS-2019M1117033

PATIENT
  Age: 48 Year
  Sex: Male
  Weight: 69 kg

DRUGS (14)
  1. CISPLATIN MYLAN [Suspect]
     Active Substance: CISPLATIN
     Indication: SQUAMOUS CELL CARCINOMA OF THE HYPOPHARYNX
     Dosage: 150 MILLIGRAM, TOTAL
     Route: 042
     Dates: start: 20180924, end: 20180924
  2. MOVICOL [Concomitant]
     Active Substance: POLYETHYLENE GLYCOL 3350\POTASSIUM CHLORIDE\SODIUM BICARBONATE\SODIUM CHLORIDE
     Dosage: UNK
  3. DEROXAT [Concomitant]
     Active Substance: PAROXETINE HYDROCHLORIDE
     Dosage: UNK
  4. PANTOPRAZOLE [Concomitant]
     Active Substance: PANTOPRAZOLE
     Dosage: UNK
  5. MORPHINE [Suspect]
     Active Substance: MORPHINE
     Indication: PAIN
     Dosage: 5 MILLIGRAM, TOTAL
     Route: 040
     Dates: start: 20181005, end: 20181005
  6. ERBITUX [Suspect]
     Active Substance: CETUXIMAB
     Indication: SQUAMOUS CELL CARCINOMA OF THE HYPOPHARYNX
     Dosage: 470 MILLIGRAM, TOTAL
     Route: 042
     Dates: start: 20181001, end: 20181001
  7. FLUOROURACILE ACCORD [Suspect]
     Active Substance: FLUOROURACIL
     Indication: SQUAMOUS CELL CARCINOMA OF THE HYPOPHARYNX
     Dosage: 6024 MILLIGRAM
     Route: 042
     Dates: start: 20180924, end: 20180924
  8. TIORFAN [Concomitant]
     Active Substance: RACECADOTRIL
     Dosage: UNK
  9. LYRICA [Concomitant]
     Active Substance: PREGABALIN
     Dosage: UNK
  10. DOXYCYCLINE. [Concomitant]
     Active Substance: DOXYCYCLINE
     Dosage: UNK
  11. ERBITUX [Suspect]
     Active Substance: CETUXIMAB
     Dosage: 750 MILLIGRAM, TOTAL
     Route: 042
     Dates: start: 20180924, end: 20180924
  12. ZARZIO [Concomitant]
     Active Substance: FILGRASTIM
     Dosage: UNK
  13. ZOPHREN                            /00955302/ [Concomitant]
     Active Substance: ONDANSETRON
     Dosage: UNK
  14. LAROXYL [Concomitant]
     Active Substance: AMITRIPTYLINE HYDROCHLORIDE
     Dosage: UNK

REACTIONS (3)
  - Pneumonia aspiration [Recovered/Resolved with Sequelae]
  - Acute kidney injury [Recovered/Resolved with Sequelae]
  - Distal intestinal obstruction syndrome [Recovered/Resolved with Sequelae]

NARRATIVE: CASE EVENT DATE: 20181005
